FAERS Safety Report 8471014-X (Version None)
Quarter: 2012Q2

REPORT INFORMATION
  Report Type: 
  Country: None (occurrence: None)
  Receive Date: 20120627
  Receipt Date: 20120614
  Transmission Date: 20120825
  Serious: Yes (Hospitalization)
  Sender: FDA-Public Use
  Company Number: US-ELI_LILLY_AND_COMPANY-US201110006042

PATIENT
  Sex: Female

DRUGS (11)
  1. FORTEO [Suspect]
     Dosage: 20 UG, QD
  2. SPIRONOLACTONE [Concomitant]
     Indication: BLOOD PRESSURE
  3. ALDACTONE [Concomitant]
     Indication: BLOOD PRESSURE
  4. FORTEO [Suspect]
     Dosage: 20 UG, QD
  5. FORTEO [Suspect]
     Dosage: 20 UG, QD
  6. FORTEO [Suspect]
     Indication: OSTEOPOROSIS
     Dosage: 20 UG, QD
     Dates: start: 20110928
  7. FORTEO [Suspect]
     Dosage: 20 UG, QD
  8. PEPCID [Concomitant]
     Indication: PRODUCT USED FOR UNKNOWN INDICATION
  9. CLINDAMYCIN [Concomitant]
     Indication: INFECTION PROPHYLAXIS
  10. FORTEO [Suspect]
     Dosage: 20 UG, QD
     Dates: start: 20120507
  11. XANAX [Concomitant]
     Indication: PRODUCT USED FOR UNKNOWN INDICATION

REACTIONS (5)
  - ARTHROPATHY [None]
  - CONSTIPATION [None]
  - INJECTION SITE DISCOMFORT [None]
  - SHOULDER ARTHROPLASTY [None]
  - BLOOD CALCIUM INCREASED [None]
